FAERS Safety Report 16016468 (Version 1)
Quarter: 2019Q1

REPORT INFORMATION
  Report Type: Spontaneous
  Country: FR (occurrence: FR)
  Receive Date: 20190228
  Receipt Date: 20190228
  Transmission Date: 20190418
  Serious: Yes (Life-Threatening)
  Sender: FDA-Public Use
  Company Number: FR-ACCORD-109702

PATIENT
  Age: 86 Year
  Sex: Male
  Weight: 70 kg

DRUGS (7)
  1. BENDAMUSTINE ACCORD [Suspect]
     Active Substance: BENDAMUSTINE
     Indication: HODGKIN^S DISEASE
     Route: 042
     Dates: start: 20180809
  2. OFLOCET [Concomitant]
     Active Substance: OFLOXACIN
  3. VALACICLOVIR [Concomitant]
     Active Substance: VALACYCLOVIR HYDROCHLORIDE
  4. TAZOCILLINE [Concomitant]
     Active Substance: PIPERACILLIN SODIUM\TAZOBACTAM SODIUM
  5. ADCETRIS [Suspect]
     Active Substance: BRENTUXIMAB VEDOTIN
     Indication: HODGKIN^S DISEASE
     Route: 042
     Dates: start: 20180809
  6. NEBIVOLOL. [Concomitant]
     Active Substance: NEBIVOLOL
  7. GRANOCYTE [Concomitant]
     Active Substance: LENOGRASTIM

REACTIONS (3)
  - Anaphylactic shock [Recovering/Resolving]
  - Off label use [Unknown]
  - Disseminated intravascular coagulation [Recovering/Resolving]

NARRATIVE: CASE EVENT DATE: 20180809
